FAERS Safety Report 14292703 (Version 3)
Quarter: 2020Q1

REPORT INFORMATION
  Report Type: Report from Study
  Country: US (occurrence: US)
  Receive Date: 20171215
  Receipt Date: 20200204
  Transmission Date: 20200409
  Serious: No
  Sender: FDA-Public Use
  Company Number: US-ROCHE-2041476

PATIENT
  Age: 46 Year
  Sex: Female
  Weight: 116.13 kg

DRUGS (1)
  1. OCREVUS [Suspect]
     Active Substance: OCRELIZUMAB
     Indication: RELAPSING-REMITTING MULTIPLE SCLEROSIS
     Dosage: ONGOIND-YES
     Route: 065
     Dates: start: 201706

REACTIONS (6)
  - Weight increased [Not Recovered/Not Resolved]
  - Oedema peripheral [Unknown]
  - Lymphoedema [Not Recovered/Not Resolved]
  - Ear infection [Not Recovered/Not Resolved]
  - White blood cell count decreased [Unknown]
  - Sinusitis [Not Recovered/Not Resolved]

NARRATIVE: CASE EVENT DATE: 201707
